FAERS Safety Report 16373022 (Version 1)
Quarter: 2019Q2

REPORT INFORMATION
  Report Type: Spontaneous
  Country: US (occurrence: US)
  Receive Date: 20190530
  Receipt Date: 20190530
  Transmission Date: 20190711
  Serious: No
  Sender: FDA-Public Use
  Company Number: US-GLAXOSMITHKLINE-US2019AMR088960

PATIENT
  Sex: Female

DRUGS (1)
  1. SUMATRIPTAN (SUMATRIPTAN SUCCINATE) TABLET [Suspect]
     Active Substance: SUMATRIPTAN
     Indication: MIGRAINE
     Dosage: UNK UNK, U
     Dates: start: 20180321

REACTIONS (4)
  - Dizziness [Unknown]
  - Vomiting [Unknown]
  - Abdominal discomfort [Unknown]
  - Product substitution issue [Unknown]
